FAERS Safety Report 18248613 (Version 1)
Quarter: 2020Q3

REPORT INFORMATION
  Report Type: Spontaneous
  Country: US (occurrence: US)
  Receive Date: 20200909
  Receipt Date: 20200909
  Transmission Date: 20201103
  Serious: No
  Sender: FDA-Public Use
  Company Number: US-AMGEN-USASP2020141989

PATIENT
  Age: 84 Year
  Sex: Female

DRUGS (4)
  1. PROLIA [Suspect]
     Active Substance: DENOSUMAB
     Indication: OSTEOPOROSIS
     Dosage: UNK
     Route: 065
  2. CALCIUM [Concomitant]
     Active Substance: CALCIUM
     Dosage: 500 MILLIGRAM, BID
  3. PROLIA [Suspect]
     Active Substance: DENOSUMAB
     Dosage: UNK
     Route: 065
  4. SIMVASTATIN. [Concomitant]
     Active Substance: SIMVASTATIN
     Dosage: 10 MILLIGRAM
     Dates: start: 2004

REACTIONS (10)
  - Taste disorder [Recovered/Resolved]
  - Retching [Unknown]
  - Nail bed disorder [Unknown]
  - Lipids abnormal [Unknown]
  - Muscle spasms [Unknown]
  - Lip swelling [Unknown]
  - Wrong technique in product usage process [Unknown]
  - Headache [Unknown]
  - Nail bed tenderness [Unknown]
  - Swollen tongue [Unknown]

NARRATIVE: CASE EVENT DATE: 2020
